FAERS Safety Report 5421897-2 (Version None)
Quarter: 2007Q3

REPORT INFORMATION
  Report Type: 
  Country: None (occurrence: None)
  Receive Date: 20070730
  Receipt Date: 20060926
  Transmission Date: 20080115
  Serious: Yes (Other)
  Sender: FDA-Public Use
  Company Number: 2006SP002937

PATIENT
  Sex: Female

DRUGS (6)
  1. RIBAVIRIN [Suspect]
     Indication: HEPATITIS C
     Dosage: PO
     Route: 048
     Dates: start: 20051014
  2. PEGASYS [Suspect]
     Indication: CHRONIC HEPATITIS
     Dates: start: 20051014
  3. ALLOPURINOL [Suspect]
     Indication: DRUG USE FOR UNKNOWN INDICATION
  4. ALDOMET [Suspect]
     Indication: DRUG USE FOR UNKNOWN INDICATION
  5. SULFAMETHOXAZOLE [Suspect]
     Indication: DRUG USE FOR UNKNOWN INDICATION
     Dates: start: 20060111, end: 20060120
  6. TRIMETHOPRIM [Suspect]
     Indication: DRUG USE FOR UNKNOWN INDICATION
     Dates: start: 20060111, end: 20060120

REACTIONS (2)
  - APLASIA PURE RED CELL [None]
  - PANCYTOPENIA [None]
